FAERS Safety Report 9724583 (Version 1)
Quarter: 2013Q4

REPORT INFORMATION
  Report Type: Spontaneous
  Country: US (occurrence: US)
  Receive Date: 20131202
  Receipt Date: 20131202
  Transmission Date: 20140711
  Serious: No
  Sender: FDA-Public Use
  Company Number: US-AMGEN-USASP2013081487

PATIENT
  Sex: 0

DRUGS (2)
  1. ENBREL [Suspect]
     Indication: ARTHRALGIA
     Dosage: 25 MG, UNK
     Route: 065
  2. ENBREL [Suspect]
     Indication: JOINT SWELLING

REACTIONS (2)
  - Arthralgia [Unknown]
  - Joint swelling [Unknown]
